FAERS Safety Report 5632905-8 (Version None)
Quarter: 2008Q1

REPORT INFORMATION
  Report Type: 
  Country: None (occurrence: None)
  Receive Date: 20080221
  Receipt Date: 20080208
  Transmission Date: 20080703
  Serious: Yes (Other)
  Sender: FDA-Public Use
  Company Number: FR-AMGEN-UK261827

PATIENT
  Age: 49 Year
  Sex: Male
  Weight: 87 kg

DRUGS (4)
  1. ARANESP [Suspect]
     Indication: RENAL TRANSPLANT
     Route: 058
     Dates: start: 20070807, end: 20071201
  2. CELLCEPT [Concomitant]
     Route: 065
     Dates: start: 20070807
  3. PROGRAF [Concomitant]
     Route: 065
     Dates: start: 20070807
  4. INIPOMP [Concomitant]
     Route: 065

REACTIONS (3)
  - HYPERTENSION [None]
  - MACROCYTOSIS [None]
  - POLYCYTHAEMIA [None]
